FAERS Safety Report 5370755-0 (Version None)
Quarter: 2007Q2

REPORT INFORMATION
  Report Type: 
  Country: None (occurrence: None)
  Receive Date: 20070618
  Receipt Date: 20061016
  Transmission Date: 20071010
  Serious: Yes (Hospitalization, Other)
  Sender: FDA-Public Use
  Company Number: PHEH2006US12958

PATIENT
  Sex: Male

DRUGS (1)
  1. GLEEVEC [Suspect]
     Indication: CHRONIC MYELOID LEUKAEMIA
     Dosage: 1 DF, QD, ORAL
     Route: 048

REACTIONS (5)
  - ANAEMIA [None]
  - BIOPSY BONE MARROW ABNORMAL [None]
  - BLOOD PRODUCT TRANSFUSION DEPENDENT [None]
  - HYPOCHROMASIA [None]
  - PLATELET COUNT DECREASED [None]
